FAERS Safety Report 4556386-0 (Version None)
Quarter: 2005Q1

REPORT INFORMATION
  Report Type: 
  Country: None (occurrence: None)
  Receive Date: 20050104
  Receipt Date: 20041112
  Transmission Date: 20050727
  Serious: Yes (Other)
  Sender: FDA-Public Use
  Company Number: 15254

PATIENT
  Age: 59 Year
  Sex: Female
  Weight: 58.0604 kg

DRUGS (1)
  1. VINORELBINE TARTRATE [Suspect]
     Indication: BREAST CANCER METASTATIC
     Dosage: 25MG/M2 (40 MG) IV
     Route: 042
     Dates: start: 20041104, end: 20041111

REACTIONS (1)
  - CHILLS [None]
